FAERS Safety Report 6848033-X (Version None)
Quarter: 2010Q3

REPORT INFORMATION
  Report Type: 
  Country: None (occurrence: None)
  Receive Date: 20100716
  Receipt Date: 20100706
  Transmission Date: 20110219
  Serious: Yes (Other)
  Sender: FDA-Public Use
  Company Number: BR-ABBOTT-10P-020-0654472-00

PATIENT
  Age: 25 Month
  Sex: Male

DRUGS (4)
  1. DEPAKENE [Suspect]
     Indication: CONVULSION
     Route: 048
  2. FRISIUM [Suspect]
     Indication: CONVULSION
     Route: 048
     Dates: start: 20090101, end: 20100621
  3. FRISIUM [Suspect]
     Route: 048
     Dates: start: 20100622
  4. GARDENAL [Suspect]
     Indication: CONVULSION
     Route: 048

REACTIONS (3)
  - CONVULSION [None]
  - DRUG INEFFECTIVE [None]
  - PRODUCT QUALITY ISSUE [None]
